FAERS Safety Report 20061906 (Version 1)
Quarter: 2021Q4

REPORT INFORMATION
  Report Type: Spontaneous
  Country: FR (occurrence: FR)
  Receive Date: 20211112
  Receipt Date: 20211112
  Transmission Date: 20220303
  Serious: Yes (Other)
  Sender: FDA-Public Use
  Company Number: None

PATIENT
  Age: 79 Year
  Sex: Female

DRUGS (10)
  1. ACETAMINOPHEN [Suspect]
     Active Substance: ACETAMINOPHEN
     Indication: Pain
     Dosage: 1500 MILLIGRAM, QD
     Route: 048
     Dates: start: 20210611, end: 20210806
  2. FOLIC ACID [Suspect]
     Active Substance: FOLIC ACID
     Indication: Folate deficiency
     Dosage: 5 MILLIGRAM, QD
     Route: 048
     Dates: start: 20210724, end: 20210805
  3. MINERAL OIL [Suspect]
     Active Substance: MINERAL OIL
     Indication: Constipation
     Dosage: 2 DOSAGE FORM, QD
     Route: 048
     Dates: start: 20210722, end: 20210805
  4. ALFUZOSIN HYDROCHLORIDE [Suspect]
     Active Substance: ALFUZOSIN HYDROCHLORIDE
     Indication: Product used for unknown indication
     Dosage: 1 DOSAGE FORM, QD
     Route: 048
     Dates: start: 20210617, end: 20210805
  5. LANTUS [Concomitant]
     Active Substance: INSULIN GLARGINE
     Dosage: 18 INTERNATIONAL UNIT, QD
     Route: 058
     Dates: start: 20210713, end: 20210805
  6. PRAVASTATINE                       /00880402/ [Concomitant]
     Dosage: 40 MILLIGRAM, QD
     Route: 048
     Dates: start: 20210611, end: 20210805
  7. FUROSEMIDE [Concomitant]
     Active Substance: FUROSEMIDE
     Dosage: 40 MILLIGRAM, QD
     Route: 048
     Dates: start: 20210718, end: 20210805
  8. VERAPAMIL                          /00014302/ [Concomitant]
     Dosage: 240 MILLIGRAM, QD
     Route: 048
     Dates: start: 20210611, end: 20210805
  9. KARDEGIC [Concomitant]
     Active Substance: ASPIRIN DL-LYSINE
     Dosage: 1 DOSAGE FORM, QD
     Route: 048
     Dates: start: 20210611, end: 20210805
  10. HUMALOG [Concomitant]
     Active Substance: INSULIN LISPRO
     Dosage: 35 INTERNATIONAL UNIT, QD
     Route: 058
     Dates: start: 20210722, end: 20210805

REACTIONS (1)
  - Pancreatitis [Recovering/Resolving]

NARRATIVE: CASE EVENT DATE: 20210804
